FAERS Safety Report 7684730-4 (Version None)
Quarter: 2011Q3

REPORT INFORMATION
  Report Type: 
  Country: None (occurrence: None)
  Receive Date: 20110810
  Receipt Date: 20110727
  Transmission Date: 20111222
  Serious: Yes (Other)
  Sender: FDA-Public Use
  Company Number: 2011MA003510

PATIENT
  Sex: Male
  Weight: 83.4619 kg

DRUGS (9)
  1. PROLOSEC [Concomitant]
  2. METOPROLOL [Concomitant]
  3. SAW PALMETTO [Concomitant]
  4. ZOLOFT [Concomitant]
  5. METOCLOPRAMIDE [Suspect]
     Indication: DYSPEPSIA
     Dosage: 10 MG; QID;
     Dates: start: 20070305, end: 20080501
  6. TURMERIC [Concomitant]
  7. KLONOPIN [Concomitant]
  8. FLOMAX [Concomitant]
  9. MYSOLINE [Concomitant]

REACTIONS (17)
  - INSOMNIA [None]
  - PARKINSON'S DISEASE [None]
  - ERECTILE DYSFUNCTION [None]
  - MUSCULOSKELETAL PAIN [None]
  - TARDIVE DYSKINESIA [None]
  - ANXIETY [None]
  - HYPERREFLEXIA [None]
  - NERVOUSNESS [None]
  - DYSTHYMIC DISORDER [None]
  - ECONOMIC PROBLEM [None]
  - GASTROOESOPHAGEAL REFLUX DISEASE [None]
  - GASTRITIS [None]
  - TREMOR [None]
  - DEPRESSION [None]
  - EXTRAPYRAMIDAL DISORDER [None]
  - CRYING [None]
  - DEPRESSED MOOD [None]
